FAERS Safety Report 5863631-8 (Version None)
Quarter: 2008Q3

REPORT INFORMATION
  Report Type: 
  Country: None (occurrence: None)
  Receive Date: 20080828
  Receipt Date: 20080826
  Transmission Date: 20090109
  Serious: Yes (Life-Threatening, Hospitalization)
  Sender: FDA-Public Use
  Company Number: FR-WYE-G01593108

PATIENT

DRUGS (13)
  1. TAZOCILLINE [Suspect]
     Indication: PROTEUS INFECTION
     Route: 042
     Dates: start: 20080313, end: 20080408
  2. TAZOCILLINE [Suspect]
     Indication: SUPERINFECTION BACTERIAL
  3. TAZOCILLINE [Suspect]
     Indication: ENTEROCOCCAL INFECTION
  4. LOVENOX [Suspect]
     Route: 042
     Dates: start: 20080301, end: 20080407
  5. LOVENOX [Suspect]
     Route: 042
     Dates: start: 20080408, end: 20080409
  6. METFORMIN HYDROCHLORIDE [Concomitant]
     Route: 048
     Dates: start: 20000101
  7. IRBESARTAN [Concomitant]
     Route: 048
  8. LANTUS [Concomitant]
  9. ADANCOR [Concomitant]
     Route: 048
  10. ASPIRIN [Concomitant]
     Route: 048
  11. BISOPROLOL FUMARATE [Concomitant]
     Route: 048
  12. MOPRAL [Suspect]
     Indication: PROPHYLAXIS
     Route: 048
     Dates: end: 20080401
  13. NOVONORM [Concomitant]
     Dosage: 10 MG TOTAL DAILY
     Route: 048

REACTIONS (2)
  - AGRANULOCYTOSIS [None]
  - MYELOID MATURATION ARREST [None]
